FAERS Safety Report 6962645-4 (Version None)
Quarter: 2010Q3

REPORT INFORMATION
  Report Type: 
  Country: None (occurrence: None)
  Receive Date: 20100902
  Receipt Date: 20100823
  Transmission Date: 20110219
  Serious: Yes (Other)
  Sender: FDA-Public Use
  Company Number: US-PFIZER INC-2010106688

PATIENT
  Sex: Male
  Weight: 46.712 kg

DRUGS (3)
  1. GEODON [Suspect]
     Indication: BIPOLAR DISORDER
     Dosage: 40 MG, 1X/DAY
     Route: 048
     Dates: start: 20100813, end: 20100819
  2. GEODON [Suspect]
     Dosage: 80 MG, DAILY
     Route: 048
     Dates: start: 20100820, end: 20100820
  3. RITALIN - SLOW RELEASE [Concomitant]
     Dosage: UNK, DAILY

REACTIONS (6)
  - CHILLS [None]
  - DIZZINESS POSTURAL [None]
  - HEADACHE [None]
  - HYPERHIDROSIS [None]
  - HYPERTENSION [None]
  - VOMITING [None]
